FAERS Safety Report 8767003 (Version 1)
Quarter: 2012Q4

REPORT INFORMATION
  Report Type: 
  Country: US (occurrence: US)
  Receive Date: 20120904
  Receipt Date: 20120904
  Transmission Date: 20130627
  Serious: No
  Sender: FDA-Public Use
  Company Number: US-MYLANLABS-2012S1009277

PATIENT
  Age: 81 Year
  Sex: Female

DRUGS (2)
  1. LORATADINE TABLETS USP [Suspect]
     Indication: MULTIPLE ALLERGIES
     Route: 048
     Dates: start: 201204, end: 201204
  2. TEMAZEPAM [Concomitant]
     Indication: INSOMNIA
     Route: 048

REACTIONS (2)
  - Drug ineffective [Not Recovered/Not Resolved]
  - Multiple allergies [Not Recovered/Not Resolved]
